FAERS Safety Report 8596672-0 (Version None)
Quarter: 2012Q3

REPORT INFORMATION
  Report Type: 
  Country: None (occurrence: None)
  Receive Date: 20120815
  Receipt Date: 20120809
  Transmission Date: 20120928
  Serious: Yes (Other)
  Sender: FDA-Public Use
  Company Number: PT-ROCHE-1099444

PATIENT
  Age: 71 Year
  Sex: Female
  Weight: 56 kg

DRUGS (8)
  1. VINCRISTINE [Concomitant]
     Route: 040
  2. ACETAMINOPHEN [Concomitant]
     Route: 040
  3. CYCLOPHOSPHAMIDE [Concomitant]
     Dosage: IN 250ML NACL 0.9%
  4. PREDNISOLONE [Concomitant]
     Route: 048
  5. SULFAMETHOXAZOLE AND TRIMETHOPRIM [Concomitant]
  6. ALLOPURINOL [Concomitant]
  7. MABTHERA [Suspect]
     Indication: B-CELL SMALL LYMPHOCYTIC LYMPHOMA
     Dosage: 500MG/50ML
     Route: 042
     Dates: start: 20120705, end: 20120705
  8. ONDANSETRON [Concomitant]
     Route: 042

REACTIONS (2)
  - SYNCOPE [None]
  - FATIGUE [None]
